FAERS Safety Report 21922452 (Version 1)
Quarter: 2023Q1

REPORT INFORMATION
  Report Type: Spontaneous
  Country: SE (occurrence: SE)
  Receive Date: 20230128
  Receipt Date: 20230128
  Transmission Date: 20230417
  Serious: Yes (Other)
  Sender: FDA-Public Use
  Company Number: None

PATIENT
  Age: 90 Year
  Sex: Male

DRUGS (1)
  1. ENALAPRIL MALEATE [Suspect]
     Active Substance: ENALAPRIL MALEATE
     Indication: Hypertension
     Dosage: 10 MG, QD (10 MG 1X1)
     Route: 048
     Dates: start: 20210430, end: 20210518

REACTIONS (2)
  - Oral pustule [Recovering/Resolving]
  - Complication associated with device [Recovering/Resolving]

NARRATIVE: CASE EVENT DATE: 20210508
